FAERS Safety Report 22037661 (Version 1)
Quarter: 2023Q1

REPORT INFORMATION
  Report Type: Spontaneous
  Country: CH (occurrence: CH)
  Receive Date: 20230227
  Receipt Date: 20230227
  Transmission Date: 20230418
  Serious: Yes (Life-Threatening, Hospitalization, Other)
  Sender: FDA-Public Use
  Company Number: None

PATIENT
  Age: 67 Year
  Sex: Male
  Weight: 65 kg

DRUGS (20)
  1. REVLIMID [Suspect]
     Active Substance: LENALIDOMIDE
     Indication: Product used for unknown indication
     Route: 048
     Dates: start: 20221209, end: 20221230
  2. REVLIMID [Suspect]
     Active Substance: LENALIDOMIDE
     Dosage: CYCLICALLY- FOR 3 WEEKS THEN ONE WEEK BREAK
     Dates: start: 20230123
  3. CLOZAPINE [Suspect]
     Active Substance: CLOZAPINE
     Indication: Product used for unknown indication
     Dates: end: 20221230
  4. CLOZAPINE [Suspect]
     Active Substance: CLOZAPINE
     Dates: start: 20230109
  5. VELCADE [Interacting]
     Active Substance: BORTEZOMIB
     Indication: Product used for unknown indication
     Route: 042
     Dates: start: 20221129, end: 20221213
  6. DEXAMETHASONE SODIUM PHOSPHATE [Interacting]
     Active Substance: DEXAMETHASONE SODIUM PHOSPHATE
     Indication: Product used for unknown indication
     Route: 048
     Dates: start: 20221129, end: 20221213
  7. DEXAMETHASONE SODIUM PHOSPHATE [Interacting]
     Active Substance: DEXAMETHASONE SODIUM PHOSPHATE
     Route: 048
     Dates: start: 20221222, end: 20221228
  8. DEXAMETHASONE SODIUM PHOSPHATE [Interacting]
     Active Substance: DEXAMETHASONE SODIUM PHOSPHATE
     Dosage: 12 MG ON MONDAYS AND 8 MG ON TUESDAYS FOR 3 WEEKS THEN A WEEK OFF, 3 WEEK CYCLE
     Route: 048
     Dates: start: 20230123
  9. XGEVA [Interacting]
     Active Substance: DENOSUMAB
     Indication: Pneumonia
     Route: 058
     Dates: start: 20221221, end: 20221221
  10. ELIQUIS [Concomitant]
     Active Substance: APIXABAN
     Indication: Product used for unknown indication
  11. ATORVASTATIN [Concomitant]
     Active Substance: ATORVASTATIN
     Indication: Product used for unknown indication
  12. CITALOPRAM [Concomitant]
     Active Substance: CITALOPRAM HYDROBROMIDE
     Indication: Product used for unknown indication
  13. LORAZEPAM [Concomitant]
     Active Substance: LORAZEPAM
     Indication: Product used for unknown indication
  14. BACTRIM [Concomitant]
     Active Substance: SULFAMETHOXAZOLE\TRIMETHOPRIM
     Indication: Product used for unknown indication
     Dates: start: 202212
  15. VALTREX [Concomitant]
     Active Substance: VALACYCLOVIR HYDROCHLORIDE
     Indication: Product used for unknown indication
     Dates: start: 202212
  16. TAMSULOSIN [Concomitant]
     Active Substance: TAMSULOSIN
     Indication: Product used for unknown indication
  17. VITAMIN D3 [Concomitant]
     Active Substance: CHOLECALCIFEROL
     Indication: Product used for unknown indication
  18. ALBUTEROL SULFATE\IPRATROPIUM BROMIDE [Concomitant]
     Active Substance: ALBUTEROL SULFATE\IPRATROPIUM BROMIDE
     Indication: Product used for unknown indication
  19. ASPIRIN [Concomitant]
     Active Substance: ASPIRIN
     Indication: Product used for unknown indication
     Dates: end: 20221222
  20. BISOPROLOL FUMARATE [Concomitant]
     Active Substance: BISOPROLOL FUMARATE
     Indication: Product used for unknown indication
     Dates: end: 20221223

REACTIONS (10)
  - Hypocalcaemia [Recovered/Resolved]
  - Drug interaction [Recovered/Resolved]
  - Hypernatraemia [Unknown]
  - Electrocardiogram QT prolonged [Recovered/Resolved]
  - Liver disorder [Unknown]
  - Encephalopathy [Unknown]
  - Infection [Unknown]
  - Hypotension [Unknown]
  - Abdominal pain [Unknown]
  - Pneumonia [Recovered/Resolved]

NARRATIVE: CASE EVENT DATE: 20221201
